FAERS Safety Report 25198502 (Version 1)
Quarter: 2025Q2

REPORT INFORMATION
  Report Type: Spontaneous
  Country: US (occurrence: US)
  Receive Date: 20250415
  Receipt Date: 20250415
  Transmission Date: 20250716
  Serious: Yes (Hospitalization)
  Sender: COSETTE PHARMACEUTICALS
  Company Number: US-COSETTE-CP2025US000387

PATIENT
  Age: 61 Year
  Sex: Female

DRUGS (2)
  1. PROCHLORPERAZINE [Suspect]
     Active Substance: PROCHLORPERAZINE
     Indication: Nausea
     Route: 065
  2. MORPHINE [Concomitant]
     Active Substance: MORPHINE
     Indication: Pain
     Route: 065

REACTIONS (1)
  - Stress cardiomyopathy [Recovered/Resolved]
